FAERS Safety Report 8214074-3 (Version None)
Quarter: 2012Q1

REPORT INFORMATION
  Report Type: 
  Country: None (occurrence: None)
  Receive Date: 20120316
  Receipt Date: 20120308
  Transmission Date: 20120608
  Serious: Yes (Other)
  Sender: FDA-Public Use
  Company Number: US-BAYER-2012-003593

PATIENT
  Age: 20 Year
  Sex: Female
  Weight: 92.971 kg

DRUGS (1)
  1. MIRENA [Suspect]
     Indication: CONTRACEPTION
     Dosage: 20 MCG/24HR, QD
     Route: 015
     Dates: start: 20111110, end: 20111230

REACTIONS (3)
  - ABDOMINAL PAIN [None]
  - UTERINE PERFORATION [None]
  - VAGINAL HAEMORRHAGE [None]
